FAERS Safety Report 20662137 (Version 1)
Quarter: 2022Q2

REPORT INFORMATION
  Report Type: Spontaneous
  Country: GB (occurrence: GB)
  Receive Date: 20220401
  Receipt Date: 20220401
  Transmission Date: 20220720
  Serious: No
  Sender: FDA-Public Use
  Company Number: None

PATIENT
  Sex: Female

DRUGS (4)
  1. IBUPROFEN [Suspect]
     Active Substance: IBUPROFEN
     Indication: Product used for unknown indication
     Dosage: UNK
  2. QUETIAPINE FUMARATE [Suspect]
     Active Substance: QUETIAPINE FUMARATE
     Indication: Product used for unknown indication
     Dosage: 50 MILLIGRAM
     Route: 065
  3. CO-DYDRAMOL [Suspect]
     Active Substance: ACETAMINOPHEN\DIHYDROCODEINE
     Indication: Product used for unknown indication
     Dosage: UNK
     Route: 065
  4. FLUOXETINE [Suspect]
     Active Substance: FLUOXETINE HYDROCHLORIDE
     Indication: Product used for unknown indication
     Dosage: UNK
     Route: 065

REACTIONS (12)
  - Musculoskeletal stiffness [Recovered/Resolved]
  - Feeling abnormal [Not Recovered/Not Resolved]
  - Sedation [Not Recovered/Not Resolved]
  - Thinking abnormal [Recovered/Resolved]
  - Lethargy [Not Recovered/Not Resolved]
  - Impaired self-care [Not Recovered/Not Resolved]
  - Psychiatric symptom [Not Recovered/Not Resolved]
  - Agitation [Not Recovered/Not Resolved]
  - Emotional distress [Not Recovered/Not Resolved]
  - Restless legs syndrome [Not Recovered/Not Resolved]
  - Akathisia [Not Recovered/Not Resolved]
  - Dry mouth [Not Recovered/Not Resolved]

NARRATIVE: CASE EVENT DATE: 20210801
